FAERS Safety Report 15590434 (Version 1)
Quarter: 2018Q4

REPORT INFORMATION
  Report Type: Spontaneous
  Country: US (occurrence: US)
  Receive Date: 20181106
  Receipt Date: 20181106
  Transmission Date: 20190205
  Serious: Yes (Hospitalization)
  Sender: FDA-Public Use
  Company Number: US-PFIZER INC-2018343752

PATIENT
  Age: 70 Year
  Sex: Female

DRUGS (2)
  1. PREPARATION H RAPID RELIEF [Suspect]
     Active Substance: GLYCERIN\LIDOCAINE
     Indication: BOWEL MOVEMENT IRREGULARITY
  2. PREPARATION H RAPID RELIEF [Suspect]
     Active Substance: GLYCERIN\LIDOCAINE
     Indication: HAEMORRHOIDS
     Dosage: UNK UNK, 1X/DAY [AT BED TIME]
     Dates: start: 20181007, end: 20181012

REACTIONS (1)
  - Drug ineffective [Recovered/Resolved]

NARRATIVE: CASE EVENT DATE: 201810
